FAERS Safety Report 9065871 (Version 1)
Quarter: 2013Q1

REPORT INFORMATION
  Report Type: Spontaneous
  Country: US (occurrence: US)
  Receive Date: 20130130
  Receipt Date: 20130130
  Transmission Date: 20140127
  Serious: Yes (Other)
  Sender: FDA-Public Use
  Company Number: US-ABBOTT-12P-163-0976209-00

PATIENT
  Sex: Female

DRUGS (2)
  1. HUMIRA PEN [Suspect]
     Indication: CROHN^S DISEASE
  2. IMURAN [Concomitant]
     Indication: PRODUCT USED FOR UNKNOWN INDICATION

REACTIONS (1)
  - Breast cancer [Not Recovered/Not Resolved]
